FAERS Safety Report 10222404 (Version 1)
Quarter: 2014Q2

REPORT INFORMATION
  Report Type: Spontaneous
  Country: DK (occurrence: DK)
  Receive Date: 20140606
  Receipt Date: 20140606
  Transmission Date: 20141212
  Serious: Yes (Hospitalization)
  Sender: FDA-Public Use
  Company Number: DK-ACTAVIS-2013-25494

PATIENT
  Sex: Female

DRUGS (4)
  1. SERTRALINE ACTAVIS [Suspect]
     Indication: ANXIETY
     Route: 065
     Dates: start: 20131003
  2. SERTRALINE ACTAVIS [Suspect]
     Dosage: 50 MG, UNK
     Route: 065
  3. MELATONIN [Concomitant]
     Indication: PRODUCT USED FOR UNKNOWN INDICATION
     Route: 065
  4. RITALIN UNO [Concomitant]
     Indication: PRODUCT USED FOR UNKNOWN INDICATION
     Route: 065

REACTIONS (5)
  - Hypersensitivity [Unknown]
  - Chest pain [Unknown]
  - Dysgeusia [Unknown]
  - Oropharyngeal pain [Unknown]
  - Dyspnoea [Unknown]
